FAERS Safety Report 5446019-3 (Version None)
Quarter: 2007Q3

REPORT INFORMATION
  Report Type: 
  Country: None (occurrence: None)
  Receive Date: 20070907
  Receipt Date: 20070905
  Transmission Date: 20080115
  Serious: Yes (Death, Hospitalization)
  Sender: FDA-Public Use
  Company Number: US-ASTRAZENECA-2007UW21035

PATIENT
  Age: 69 Year
  Sex: Male

DRUGS (3)
  1. SEROQUEL [Suspect]
     Indication: POST-TRAUMATIC STRESS DISORDER
     Route: 048
     Dates: start: 20060101, end: 20060801
  2. SEROQUEL [Suspect]
     Indication: INSOMNIA
     Route: 048
     Dates: start: 20060101, end: 20060801
  3. DIABETIC MEDICATION [Concomitant]

REACTIONS (4)
  - INFECTION [None]
  - KLEBSIELLA SEPSIS [None]
  - PNEUMONIA [None]
  - TARDIVE DYSKINESIA [None]
